FAERS Safety Report 6732344-2 (Version None)
Quarter: 2010Q2

REPORT INFORMATION
  Report Type: 
  Country: None (occurrence: None)
  Receive Date: 20100519
  Receipt Date: 20100517
  Transmission Date: 20101027
  Serious: Yes (Hospitalization)
  Sender: FDA-Public Use
  Company Number: SG-ROCHE-661409

PATIENT
  Sex: Male

DRUGS (23)
  1. METHOXY POLYETHYLENE GLYCOL-EPOETIN BETA [Suspect]
     Dosage: LAST DOSE PRIOR TO SAE 29 MARCH 2010. DOSE FORM:PFS.
     Route: 058
     Dates: start: 20090925
  2. FAMOTIDINE [Concomitant]
     Dates: start: 20060504
  3. TICLOPIDINE HCL [Concomitant]
     Dates: start: 20061229
  4. SIMVASTATIN [Concomitant]
     Dates: start: 20060504
  5. ENALAPRIL [Concomitant]
     Dates: start: 20061229
  6. ENALAPRIL [Concomitant]
     Dates: start: 20081008
  7. ATENOLOL [Concomitant]
     Dates: start: 20060504
  8. ISOSORBIDE MONONITRATE [Concomitant]
     Dosage: DRUG REPORTED AS ISOSORBIDE 5 MONONITRATE SR
     Dates: start: 20061229
  9. CA CARBONATE [Concomitant]
     Dates: start: 20090213
  10. RENAL-VIT [Concomitant]
     Dosage: TOTAL DAILY DOSE AS 1 TAB
     Dates: start: 20060504
  11. INSULATARD [Concomitant]
     Dosage: UNITS
     Dates: start: 20060504
  12. INSULATARD [Concomitant]
     Dates: start: 20080423
  13. ACTRAPID [Concomitant]
     Dosage: UNIT
     Dates: start: 20060504
  14. ROCALTROL [Concomitant]
     Dates: start: 20081008
  15. ROCALTROL [Concomitant]
     Dosage: DRUG NAME AS CALCITRIOL.
     Dates: start: 20090622
  16. VENOFER [Concomitant]
     Dates: start: 20081008
  17. VENOFER [Concomitant]
     Dates: start: 20070425
  18. OMEPRAZOLE [Concomitant]
     Dates: start: 20081029
  19. OMEPRAZOLE [Concomitant]
     Dates: start: 20081229
  20. OMEPRAZOLE [Concomitant]
     Dates: start: 20091216
  21. TOLBUTAMIDE [Concomitant]
     Dates: start: 20090316
  22. TRIMETAZIDINE [Concomitant]
     Dates: start: 20090930
  23. CLOPIDOGREL [Concomitant]
     Dates: start: 20090930

REACTIONS (2)
  - ACUTE MYOCARDIAL INFARCTION [None]
  - ANGINA UNSTABLE [None]
